FAERS Safety Report 6702622-1 (Version None)
Quarter: 2010Q2

REPORT INFORMATION
  Report Type: 
  Country: None (occurrence: None)
  Receive Date: 20100429
  Receipt Date: 20100426
  Transmission Date: 20101027
  Serious: Yes (Other)
  Sender: FDA-Public Use
  Company Number: CHPA2010US07431

PATIENT
  Age: 3 Year
  Sex: Male

DRUGS (1)
  1. TRIAMINIC NIGHT TIME COLD + COUGH (NCH) [Suspect]
     Dosage: UNK, UNK
     Route: 048
     Dates: start: 20100425, end: 20100425

REACTIONS (4)
  - HALLUCINATION [None]
  - INCORRECT DOSE ADMINISTERED [None]
  - MALAISE [None]
  - OVERDOSE [None]
